FAERS Safety Report 8364516-8 (Version None)
Quarter: 2012Q2

REPORT INFORMATION
  Report Type: 
  Country: None (occurrence: None)
  Receive Date: 20120516
  Receipt Date: 20120514
  Transmission Date: 20120825
  Serious: Yes (Hospitalization)
  Sender: FDA-Public Use
  Company Number: CA-MERCK-1204USA04464

PATIENT
  Age: 75 Year
  Sex: Male
  Weight: 72 kg

DRUGS (5)
  1. AMLODIPINE [Concomitant]
     Indication: HYPERTENSION
     Route: 065
     Dates: start: 20120225, end: 20120316
  2. ZOCOR [Suspect]
     Route: 048
  3. ZOCOR [Suspect]
     Indication: ACUTE MYOCARDIAL INFARCTION
     Route: 048
     Dates: start: 20120225, end: 20120316
  4. ZOCOR [Suspect]
     Route: 048
  5. ZOCOR [Suspect]
     Indication: CORONARY ARTERY DISEASE
     Route: 048
     Dates: start: 20120225, end: 20120316

REACTIONS (2)
  - ACUTE MYOCARDIAL INFARCTION [None]
  - RHABDOMYOLYSIS [None]
